FAERS Safety Report 4503349-7 (Version None)
Quarter: 2004Q4

REPORT INFORMATION
  Report Type: 
  Country: None (occurrence: None)
  Receive Date: 20041112
  Receipt Date: 20041108
  Transmission Date: 20050328
  Serious: Yes (Other)
  Sender: FDA-Public Use
  Company Number: KII-2004-0013846

PATIENT
  Age: 40 Year
  Sex: Male

DRUGS (3)
  1. HYDROMORPHONE HCL (SIMILAR TO NDA21-044)(HYDROMORPHONE HYDROCHLORIDE) [Suspect]
     Indication: DRUG USE FOR UNKNOWN INDICATION
     Dosage: ORAL
     Route: 048
  2. COCAINE (COCAINE) [Suspect]
     Indication: DRUG USE FOR UNKNOWN INDICATION
     Dosage: INHALATION
     Route: 055
  3. HEROIN (DIAMORPHINE) [Suspect]
     Indication: DRUG USE FOR UNKNOWN INDICATION
     Dosage: INHALATION
     Route: 055

REACTIONS (3)
  - COMA [None]
  - POLYSUBSTANCE ABUSE [None]
  - SOMNOLENCE [None]
